FAERS Safety Report 6825065-9 (Version None)
Quarter: 2010Q3

REPORT INFORMATION
  Report Type: 
  Country: None (occurrence: None)
  Receive Date: 20100708
  Receipt Date: 20061213
  Transmission Date: 20110219
  Serious: Yes (Other)
  Sender: FDA-Public Use
  Company Number: US-PFIZER INC-2006153134

PATIENT
  Sex: Female
  Weight: 72.57 kg

DRUGS (7)
  1. CHANTIX [Suspect]
     Indication: SMOKING CESSATION THERAPY
     Dates: start: 20061209
  2. LIPITOR [Concomitant]
  3. NEXIUM [Concomitant]
  4. SPIRIVA [Concomitant]
  5. XOPENEX [Concomitant]
  6. ADVAIR DISKUS 100/50 [Concomitant]
  7. LEXAPRO [Concomitant]
     Dates: start: 20061101

REACTIONS (3)
  - DRY MOUTH [None]
  - INSOMNIA [None]
  - PALPITATIONS [None]
